FAERS Safety Report 13520238 (Version 2)
Quarter: 2017Q2

REPORT INFORMATION
  Report Type: Spontaneous
  Country: US (occurrence: US)
  Receive Date: 20170507
  Receipt Date: 20170612
  Transmission Date: 20170830
  Serious: Yes (Death, Hospitalization, Other)
  Sender: FDA-Public Use
  Company Number: US-PURDUE-USA-2017-0138654

PATIENT
  Age: 58 Year
  Sex: Female

DRUGS (2)
  1. OXYCODONE/ ACETAMINOPHEN TABLETS [Suspect]
     Active Substance: ACETAMINOPHEN\OXYCODONE HYDROCHLORIDE
     Indication: PAIN
     Dosage: UNK (5 MG/325 MG, 1 OR 2 TABLETS EVERY 6 TO 8 HOURS)
     Route: 048
     Dates: start: 20161129, end: 20170105
  2. SUTENT [Suspect]
     Active Substance: SUNITINIB MALATE
     Indication: RENAL CELL CARCINOMA
     Dosage: 50 MG, DAILY
     Route: 065
     Dates: start: 20161215, end: 20170102

REACTIONS (9)
  - Abdominal pain lower [Unknown]
  - Dyspnoea [Unknown]
  - Haemorrhoids [Unknown]
  - Vaginal haemorrhage [Unknown]
  - Blood urine present [Unknown]
  - Haemorrhoidal haemorrhage [Unknown]
  - Death [Fatal]
  - Hospice care [Unknown]
  - Dyschezia [Unknown]

NARRATIVE: CASE EVENT DATE: 20170104
